FAERS Safety Report 14684663 (Version 4)
Quarter: 2018Q2

REPORT INFORMATION
  Report Type: Report from Study
  Country: US (occurrence: US)
  Receive Date: 20180327
  Receipt Date: 20180529
  Transmission Date: 20180711
  Serious: Yes (Hospitalization, Disabling)
  Sender: FDA-Public Use
  Company Number: US-JNJFOC-20180115763

PATIENT
  Sex: Female

DRUGS (2)
  1. IMBRUVICA [Suspect]
     Active Substance: IBRUTINIB
     Indication: LYMPHOCYTIC LEUKAEMIA
     Route: 048
     Dates: start: 20170530
  2. IMBRUVICA [Suspect]
     Active Substance: IBRUTINIB
     Indication: LYMPHOCYTIC LEUKAEMIA
     Route: 048
     Dates: start: 20160602

REACTIONS (7)
  - Malaise [Unknown]
  - Hospitalisation [Unknown]
  - Deafness [Unknown]
  - Blindness [Unknown]
  - Feeling abnormal [Unknown]
  - Sleep disorder [Unknown]
  - Head discomfort [Unknown]

NARRATIVE: CASE EVENT DATE: 2017
